FAERS Safety Report 5383106-2 (Version None)
Quarter: 2007Q3

REPORT INFORMATION
  Report Type: 
  Country: None (occurrence: None)
  Receive Date: 20070710
  Receipt Date: 20070628
  Transmission Date: 20080115
  Serious: Yes (Other)
  Sender: FDA-Public Use
  Company Number: US-SANOFI-SYNTHELABO-A03200701400

PATIENT
  Sex: Male
  Weight: 77.6 kg

DRUGS (3)
  1. ELOXATIN [Suspect]
     Route: 042
     Dates: start: 20060926, end: 20060926
  2. LEUCOVORIN CALCIUM [Concomitant]
     Route: 042
     Dates: start: 20060926, end: 20060926
  3. FLUOROURACIL [Concomitant]
     Route: 042
     Dates: start: 20060926, end: 20060926

REACTIONS (1)
  - RIB FRACTURE [None]
